FAERS Safety Report 13071463 (Version 1)
Quarter: 2016Q4

REPORT INFORMATION
  Report Type: Spontaneous
  Country: US (occurrence: US)
  Receive Date: 20161229
  Receipt Date: 20161229
  Transmission Date: 20170207
  Serious: No
  Sender: FDA-Public Use
  Company Number: US-PFIZER INC-2016592991

PATIENT
  Age: 17 Year
  Sex: Female

DRUGS (1)
  1. SUMATRIPTAN SUCCINATE. [Suspect]
     Active Substance: SUMATRIPTAN SUCCINATE
     Indication: HEADACHE
     Dosage: 25 MG, UNK (ONE SUMATRIPTAN 25MG. BY 11:30, GAVE A SECOND SUMATRIPTAN AT 12:15)

REACTIONS (2)
  - Drug effect incomplete [Recovering/Resolving]
  - Asthenia [Unknown]
